FAERS Safety Report 13350839 (Version 1)
Quarter: 2017Q1

REPORT INFORMATION
  Report Type: Spontaneous
  Country: US (occurrence: US)
  Receive Date: 20170320
  Receipt Date: 20170320
  Transmission Date: 20170429
  Serious: Yes (Other)
  Sender: FDA-Public Use
  Company Number: US-RECKITT BENCKISER HEALTHCARE INT LIMITED-RB-82827-2017

PATIENT
  Age: 5 Year
  Sex: Male

DRUGS (2)
  1. CHILDRENS MUCINEX CONGESTION AND COUGH [Suspect]
     Active Substance: DEXTROMETHORPHAN HYDROBROMIDE\GUAIFENESIN\PHENYLEPHRINE HYDROCHLORIDE
     Indication: PRODUCT USED FOR UNKNOWN INDICATION
     Dosage: GIVEN THE RECOMMENDED DOSE
     Route: 048
     Dates: start: 20170311
  2. CHILDRENS MUCINEX CONGESTION AND COUGH [Suspect]
     Active Substance: DEXTROMETHORPHAN HYDROBROMIDE\GUAIFENESIN\PHENYLEPHRINE HYDROCHLORIDE
     Dosage: TOOK 3-4 TEASPOONFUL OF THE PRODUCT
     Route: 048
     Dates: start: 20170312

REACTIONS (2)
  - Dizziness [Unknown]
  - Overdose [Unknown]

NARRATIVE: CASE EVENT DATE: 20170312
